FAERS Safety Report 25156371 (Version 1)
Quarter: 2025Q2

REPORT INFORMATION
  Report Type: Spontaneous
  Country: HU (occurrence: HU)
  Receive Date: 20250403
  Receipt Date: 20250403
  Transmission Date: 20250716
  Serious: Yes (Other)
  Sender: INSUD PHARMA
  Company Number: HU-EXELTIS PHARMACEUTICAL HOLDING, S.L.-2503HU02331

PATIENT
  Age: 39 Year
  Sex: Female

DRUGS (4)
  1. DROSPIRENONE [Suspect]
     Active Substance: DROSPIRENONE
     Indication: Contraception
     Route: 048
     Dates: start: 202403, end: 20250311
  2. DROSPIRENONE [Suspect]
     Active Substance: DROSPIRENONE
     Indication: Menstrual disorder
  3. DROSPIRENONE [Suspect]
     Active Substance: DROSPIRENONE
     Indication: Adenomyosis
  4. DROSPIRENONE [Suspect]
     Active Substance: DROSPIRENONE
     Indication: Leiomyoma

REACTIONS (2)
  - Angina pectoris [Unknown]
  - Product use in unapproved indication [Unknown]

NARRATIVE: CASE EVENT DATE: 20250301
